FAERS Safety Report 12426078 (Version 1)
Quarter: 2016Q2

REPORT INFORMATION
  Report Type: Spontaneous
  Country: CA (occurrence: CA)
  Receive Date: 20160601
  Receipt Date: 20160601
  Transmission Date: 20160815
  Serious: Yes (Other)
  Sender: FDA-Public Use
  Company Number: CA-HQ SPECIALTY-CA-2016INT000319

PATIENT
  Age: 60 Year
  Sex: Female

DRUGS (5)
  1. PLAQUENIL                          /00072602/ [Suspect]
     Active Substance: HYDROXYCHLOROQUINE DIPHOSPHATE
     Indication: RHEUMATOID ARTHRITIS
     Dosage: 400 MG (200 MG, 2 IN 1 D)
     Dates: start: 201302
  2. HUMIRA [Suspect]
     Active Substance: ADALIMUMAB
     Indication: RHEUMATOID ARTHRITIS
     Dosage: 40 MG, 2 W
     Dates: start: 201401
  3. HUMIRA [Suspect]
     Active Substance: ADALIMUMAB
     Dosage: 40 MG, 1 W
     Dates: end: 20160419
  4. METHOTREXATE SODIUM. [Suspect]
     Active Substance: METHOTREXATE SODIUM
     Indication: RHEUMATOID ARTHRITIS
     Dosage: 3.5714 MG (25 MG, 1 IN 1 W)
     Dates: start: 201312
  5. SIMPONI [Suspect]
     Active Substance: GOLIMUMAB
     Indication: RHEUMATOID ARTHRITIS
     Dosage: 50 MG, 1 MO
     Dates: start: 201511, end: 201605

REACTIONS (5)
  - Condition aggravated [Unknown]
  - Synovitis [Unknown]
  - Drug ineffective [Unknown]
  - Arthropathy [Unknown]
  - Polyarthritis [Unknown]

NARRATIVE: CASE EVENT DATE: 201312
